FAERS Safety Report 7954566-5 (Version None)
Quarter: 2011Q4

REPORT INFORMATION
  Report Type: 
  Country: None (occurrence: None)
  Receive Date: 20111202
  Receipt Date: 20111123
  Transmission Date: 20120403
  Serious: Yes (Hospitalization)
  Sender: FDA-Public Use
  Company Number: PHHO2011US16906

PATIENT
  Sex: Male
  Weight: 102.5 kg

DRUGS (4)
  1. CERTICAN [Suspect]
     Dosage: 0.5 Q12
     Dates: start: 20111022
  2. CERTICAN [Suspect]
     Indication: RENAL TRANSPLANT
     Dosage: 0.5 Q12
     Dates: start: 20110930, end: 20111019
  3. CERTICAN [Suspect]
     Dosage: 0.25 Q12
     Dates: start: 20111020, end: 20111021
  4. TACROLIMUS [Suspect]
     Indication: RENAL TRANSPLANT

REACTIONS (3)
  - FEBRILE NEUTROPENIA [None]
  - CYTOMEGALOVIRUS INFECTION [None]
  - PNEUMONIA BACTERIAL [None]
